FAERS Safety Report 5648655-8 (Version None)
Quarter: 2008Q1

REPORT INFORMATION
  Report Type: 
  Country: None (occurrence: None)
  Receive Date: 20080304
  Receipt Date: 20080227
  Transmission Date: 20080703
  Serious: Yes (Death, Hospitalization)
  Sender: FDA-Public Use
  Company Number: A0712227A

PATIENT
  Age: 38 Year
  Sex: Female

DRUGS (2)
  1. ADVAIR DISKUS 100/50 [Suspect]
     Indication: ASTHMA
     Route: 055
     Dates: start: 20000101, end: 20001117
  2. UNKNOWN [Concomitant]

REACTIONS (4)
  - ABASIA [None]
  - APHASIA [None]
  - DYSPNOEA [None]
  - MYOCARDIAL INFARCTION [None]
